FAERS Safety Report 7216370-5 (Version None)
Quarter: 2011Q1

REPORT INFORMATION
  Report Type: 
  Country: None (occurrence: None)
  Receive Date: 20110107
  Receipt Date: 20101227
  Transmission Date: 20110831
  Serious: Yes (Death)
  Sender: FDA-Public Use
  Company Number: US-GENZYME-CAMP-1001246

PATIENT

DRUGS (8)
  1. TACROLIMUS [Concomitant]
     Route: 048
  2. BUSULFAN [Suspect]
     Indication: STEM CELL TRANSPLANT
     Dosage: 0.5 MG/KG, ONCE
     Route: 042
  3. CLONAZEPAM [Concomitant]
     Indication: CONVULSION PROPHYLAXIS
     Dosage: 1 MG, QD
     Route: 065
  4. CAMPATH [Suspect]
     Indication: STEM CELL TRANSPLANT
     Dosage: 20 MG, QD
     Route: 065
  5. FLUDARA [Suspect]
     Indication: STEM CELL TRANSPLANT
     Dosage: 25 MG/M2, QD
     Route: 065
  6. BUSULFAN [Suspect]
     Dosage: UNK
     Route: 042
  7. CLONAZEPAM [Concomitant]
     Dosage: 1 MG, TID
     Route: 065
  8. TACROLIMUS [Concomitant]
     Indication: IMMUNOSUPPRESSANT DRUG THERAPY
     Route: 042

REACTIONS (1)
  - VENOOCCLUSIVE LIVER DISEASE [None]
